FAERS Safety Report 7550447-X (Version None)
Quarter: 2011Q2

REPORT INFORMATION
  Report Type: 
  Country: None (occurrence: None)
  Receive Date: 20110615
  Receipt Date: 20110310
  Transmission Date: 20111010
  Serious: No
  Sender: FDA-Public Use
  Company Number: US-BAUSCH-2011BL001504

PATIENT
  Age: 82 Year
  Sex: Female

DRUGS (2)
  1. BESIVANCE [Suspect]
     Indication: PREOPERATIVE CARE
     Route: 047
     Dates: start: 20110305, end: 20110306
  2. BESIVANCE [Suspect]
     Indication: OFF LABEL USE
     Route: 047
     Dates: start: 20110305, end: 20110306

REACTIONS (2)
  - EYE IRRITATION [None]
  - VISION BLURRED [None]
